FAERS Safety Report 8584435-1 (Version None)
Quarter: 2012Q3

REPORT INFORMATION
  Report Type: 
  Country: None (occurrence: None)
  Receive Date: 20120730
  Receipt Date: 20120723
  Transmission Date: 20120928
  Serious: Yes (Death)
  Sender: FDA-Public Use
  Company Number: DSA_58550_2012

PATIENT
  Sex: Male

DRUGS (1)
  1. XENAZINE [Suspect]
     Indication: PRODUCT USED FOR UNKNOWN INDICATION
     Dosage: 25 MG BID ORAL
     Route: 048
     Dates: start: 20100317, end: 20120721

REACTIONS (3)
  - PNEUMONIA [None]
  - ACUTE RESPIRATORY FAILURE [None]
  - HUNTINGTON'S DISEASE [None]
